FAERS Safety Report 7249142-6 (Version None)
Quarter: 2011Q1

REPORT INFORMATION
  Report Type: 
  Country: None (occurrence: None)
  Receive Date: 20110128
  Receipt Date: 20101124
  Transmission Date: 20110831
  Serious: Yes (Other)
  Sender: FDA-Public Use
  Company Number: US-BAYER-2010-000427

PATIENT
  Sex: Male

DRUGS (3)
  1. AVELOX [Suspect]
     Indication: SINUSITIS
     Dosage: 400 MG, QD
     Dates: start: 20101123, end: 20101127
  2. LOTENSIN [Concomitant]
  3. XANAX [Concomitant]

REACTIONS (2)
  - HEART RATE IRREGULAR [None]
  - FATIGUE [None]
